FAERS Safety Report 10189351 (Version 1)
Quarter: 2014Q2

REPORT INFORMATION
  Report Type: Spontaneous
  Country: US (occurrence: None)
  Receive Date: 20140521
  Receipt Date: 20140521
  Transmission Date: 20141212
  Serious: No
  Sender: FDA-Public Use
  Company Number: None

PATIENT
  Age: 49 Year
  Sex: Male
  Weight: 86.18 kg

DRUGS (2)
  1. CREST PRO-HEALTH RINSE [Suspect]
     Indication: DENTAL DISORDER PROPHYLAXIS
     Dates: start: 20140428, end: 20140429
  2. PRILOSEC [Concomitant]

REACTIONS (3)
  - Dysgeusia [None]
  - Dysgeusia [None]
  - Weight decreased [None]
